FAERS Safety Report 16587205 (Version 2)
Quarter: 2019Q4

REPORT INFORMATION
  Report Type: Spontaneous
  Country: US (occurrence: US)
  Receive Date: 20190717
  Receipt Date: 20191126
  Transmission Date: 20200122
  Serious: No
  Sender: FDA-Public Use
  Company Number: US-SA-2019SA192697

PATIENT
  Sex: Female

DRUGS (3)
  1. RENAGEL [Suspect]
     Active Substance: SEVELAMER HYDROCHLORIDE
     Dosage: 4 DF, TID
     Route: 048
  2. RENAGEL [Suspect]
     Active Substance: SEVELAMER HYDROCHLORIDE
     Dosage: 2 DF, BID
     Route: 048
  3. RENAGEL [Suspect]
     Active Substance: SEVELAMER HYDROCHLORIDE
     Dosage: UNK

REACTIONS (2)
  - Product colour issue [Not Recovered/Not Resolved]
  - Product odour abnormal [Not Recovered/Not Resolved]
